FAERS Safety Report 7632812 (Version 2)
Quarter: 2020Q3

REPORT INFORMATION
  Report Type: Report from Study
  Country: BR (occurrence: BR)
  Receive Date: 20101018
  Receipt Date: 20101123
  Transmission Date: 20201105
  Serious: Yes (Other)
  Sender: FDA-Public Use
  Company Number: BR-ROCHE-733621

PATIENT
  Age: 54 Year
  Sex: Female
  Weight: 57 kg

DRUGS (9)
  1. RITUXIMAB. [Suspect]
     Active Substance: RITUXIMAB
     Indication: SJOGREN^S SYNDROME
     Dosage: DOSE: 1000 MG/ML; FOR: INFUSION
     Route: 042
     Dates: start: 20100921, end: 20101005
  2. MACRODANTIN [Concomitant]
     Active Substance: NITROFURANTOIN
     Dates: start: 2008
  3. MAREVAN [Concomitant]
     Active Substance: WARFARIN SODIUM
     Dates: start: 2008
  4. IBANDRONIC ACID. [Suspect]
     Active Substance: IBANDRONIC ACID
     Dosage: DOSE REPORTED AS INJECTABLE
     Route: 065
     Dates: end: 201008
  5. SIMVASTATIN. [Concomitant]
     Active Substance: SIMVASTATIN
     Dates: start: 2008
  6. FRESH TEARS [Concomitant]
     Dosage: ROUTE REPORTED AS OCULAR EYE DROPS
     Route: 050
     Dates: start: 2008
  7. CLONAZEPAM. [Suspect]
     Active Substance: CLONAZEPAM
     Dosage: ROUTE REPORTED AS 0.5 MG
     Route: 065
     Dates: start: 2008
  8. CONCOR [Concomitant]
     Active Substance: BISOPROLOL FUMARATE
     Dates: start: 2008
  9. SYNTHROID [Concomitant]
     Active Substance: LEVOTHYROXINE SODIUM
     Dates: start: 2008

REACTIONS (11)
  - Neck pain [Recovered/Resolved]
  - Urinary tract infection [Recovered/Resolved]
  - Synovial cyst [Recovered/Resolved]
  - Gastritis [Recovered/Resolved]
  - Hypertension [Not Recovered/Not Resolved]
  - Bone pain [Recovered/Resolved]
  - Abdominal pain upper [Recovered/Resolved]
  - Thrombosis [Not Recovered/Not Resolved]
  - Carotid artery occlusion [Not Recovered/Not Resolved]
  - Disease recurrence [None]
  - Musculoskeletal stiffness [Recovered/Resolved]

NARRATIVE: CASE EVENT DATE: 20080101
